FAERS Safety Report 8531169-5 (Version None)
Quarter: 2012Q3

REPORT INFORMATION
  Report Type: 
  Country: None (occurrence: None)
  Receive Date: 20120723
  Receipt Date: 20120713
  Transmission Date: 20120928
  Serious: Yes (Hospitalization)
  Sender: FDA-Public Use
  Company Number: FR-EISAI INC-E3810-05700-SPO-FR

PATIENT
  Sex: Female
  Weight: 83 kg

DRUGS (20)
  1. RABEPRAZOLE SODIUM [Suspect]
     Route: 065
  2. ALFUZOSIN HYDROCHLORIDE [Suspect]
     Route: 048
     Dates: start: 20120121
  3. EUPRESSYL [Suspect]
     Route: 048
     Dates: start: 20120114
  4. LITHIUM CARBONATE [Concomitant]
     Route: 065
  5. ZOLPIDEM TARTRATE [Suspect]
     Route: 048
  6. TERCIAN [Suspect]
     Route: 048
  7. PAROXETINE HCL [Suspect]
     Route: 065
  8. QUETIAPINE FUMARATE [Suspect]
     Route: 048
     Dates: start: 20120104, end: 20120129
  9. LEPTICUR [Concomitant]
     Route: 065
  10. SULFARLEM [Concomitant]
     Route: 065
  11. FLUTICASONE PROPIONATE/SALMETEROL [Concomitant]
     Route: 065
  12. ACAMPROSATE CALCIUM [Concomitant]
     Route: 065
  13. THERALENE [Concomitant]
     Route: 065
  14. VALPROIC ACID [Suspect]
     Route: 048
  15. CORDARONE [Suspect]
     Indication: ATRIAL FIBRILLATION
     Route: 048
     Dates: start: 20111201, end: 20120125
  16. VALIUM [Concomitant]
     Route: 065
  17. GLUCOPHAGE [Suspect]
     Route: 048
  18. ATORVASTATIN [Suspect]
     Dosage: UNKNOWN
     Route: 048
     Dates: start: 20120115, end: 20120118
  19. LYRICA [Concomitant]
     Route: 065
  20. VENTOLIN [Concomitant]
     Route: 065

REACTIONS (2)
  - CYTOLYTIC HEPATITIS [None]
  - CHOLESTASIS [None]
